FAERS Safety Report 6978390-5 (Version None)
Quarter: 2010Q3

REPORT INFORMATION
  Report Type: 
  Country: None (occurrence: None)
  Receive Date: 20100913
  Receipt Date: 20100909
  Transmission Date: 20110219
  Serious: Yes (Other)
  Sender: FDA-Public Use
  Company Number: US-BRISTOL-MYERS SQUIBB COMPANY-15277908

PATIENT
  Sex: Female

DRUGS (1)
  1. TRAZODONE HCL [Suspect]

REACTIONS (3)
  - AGITATION [None]
  - DEPRESSION [None]
  - NERVOUSNESS [None]
